FAERS Safety Report 5326833-5 (Version None)
Quarter: 2007Q2

REPORT INFORMATION
  Report Type: 
  Country: None (occurrence: None)
  Receive Date: 20070504
  Receipt Date: 20070423
  Transmission Date: 20071010
  Serious: Yes (Death, Hospitalization)
  Sender: FDA-Public Use
  Company Number: B0468673A

PATIENT
  Age: 57 Year
  Sex: Male

DRUGS (2)
  1. EPIVIR-HBV [Suspect]
     Indication: HEPATITIS B
     Dates: start: 20011201
  2. INTERFERON ALFA (FORMULATION UNKNOWN) (INTERFERON ALFA) [Suspect]

REACTIONS (7)
  - DISEASE RECURRENCE [None]
  - HEPATIC FAILURE [None]
  - HEPATITIS B [None]
  - HEPATITIS B E ANTIGEN POSITIVE [None]
  - OESOPHAGEAL VARICES HAEMORRHAGE [None]
  - PATHOGEN RESISTANCE [None]
  - VIRAL MUTATION IDENTIFIED [None]
